FAERS Safety Report 14055797 (Version 1)
Quarter: 2017Q4

REPORT INFORMATION
  Report Type: Spontaneous
  Country: US (occurrence: US)
  Receive Date: 20171006
  Receipt Date: 20171006
  Transmission Date: 20180321
  Serious: Yes (Hospitalization, Other)
  Sender: FDA-Public Use
  Company Number: US-APOTEX-2017AP019326

PATIENT
  Age: 56 Year
  Sex: Male

DRUGS (2)
  1. MEROPENEM. [Suspect]
     Active Substance: MEROPENEM
     Indication: NOSOCOMIAL INFECTION
     Dosage: UNK
     Route: 065
  2. PIPERACILLIN AND TAZOBACTAM [Suspect]
     Active Substance: PIPERACILLIN SODIUM\TAZOBACTAM SODIUM
     Indication: OSTEOMYELITIS
     Dosage: UNK
     Route: 065

REACTIONS (5)
  - Tubulointerstitial nephritis [Unknown]
  - Rash [Unknown]
  - Drug interaction [Unknown]
  - Renal impairment [Unknown]
  - Therapeutic product cross-reactivity [Unknown]
